FAERS Safety Report 4624483-7 (Version None)
Quarter: 2005Q2

REPORT INFORMATION
  Report Type: 
  Country: None (occurrence: None)
  Receive Date: 20050325
  Receipt Date: 20050128
  Transmission Date: 20051028
  Serious: No
  Sender: FDA-Public Use
  Company Number: USA050189401

PATIENT
  Age: 81 Year
  Sex: Female

DRUGS (3)
  1. FORTEO [Suspect]
     Indication: OSTEOPOROSIS
     Dates: start: 20050121, end: 20050101
  2. NORVASC [Concomitant]
  3. ATENOLOL [Concomitant]

REACTIONS (3)
  - EYELID OEDEMA [None]
  - HEADACHE [None]
  - SWELLING FACE [None]
